FAERS Safety Report 8071337-2 (Version None)
Quarter: 2012Q1

REPORT INFORMATION
  Report Type: 
  Country: None (occurrence: None)
  Receive Date: 20120125
  Receipt Date: 20120123
  Transmission Date: 20120608
  Serious: No
  Sender: FDA-Public Use
  Company Number: US-PFIZER INC-2012002651

PATIENT
  Sex: Female
  Weight: 118 kg

DRUGS (2)
  1. CHANTIX [Suspect]
     Indication: SMOKING CESSATION THERAPY
     Dosage: 0.5 MG, 1X/DAY
     Route: 048
     Dates: start: 20111118, end: 20110101
  2. CHANTIX [Suspect]
     Dosage: 1 MG, 2X/DAY
     Route: 048
     Dates: start: 20110101

REACTIONS (6)
  - ORAL HERPES [None]
  - SLEEP DISORDER [None]
  - IRRITABLE BOWEL SYNDROME [None]
  - LYMPHADENOPATHY [None]
  - LIP BLISTER [None]
  - BACTERIAL INFECTION [None]
